FAERS Safety Report 6834370-1 (Version None)
Quarter: 2010Q3

REPORT INFORMATION
  Report Type: 
  Country: None (occurrence: None)
  Receive Date: 20100712
  Receipt Date: 20070418
  Transmission Date: 20110219
  Serious: No
  Sender: FDA-Public Use
  Company Number: US-PFIZER INC-2007031425

PATIENT
  Age: 48 Year
  Sex: Female
  Weight: 80.909 kg

DRUGS (8)
  1. CHANTIX [Suspect]
     Indication: SMOKING CESSATION THERAPY
     Dates: start: 20070401, end: 20070401
  2. KLONOPIN [Concomitant]
     Indication: ANXIETY
  3. AMARYL [Concomitant]
     Indication: DIABETES MELLITUS
  4. GLUCOPHAGE [Concomitant]
     Indication: DIABETES MELLITUS
  5. NEXIUM [Concomitant]
  6. LOTREL [Concomitant]
     Indication: BLOOD PRESSURE ABNORMAL
  7. ATENOLOL [Concomitant]
     Indication: HEART RATE INCREASED
  8. VISTARIL [Concomitant]
     Indication: FEELING JITTERY
     Dates: start: 20070401

REACTIONS (2)
  - ABNORMAL DREAMS [None]
  - INSOMNIA [None]
